FAERS Safety Report 15834452 (Version 1)
Quarter: 2019Q1

REPORT INFORMATION
  Report Type: Spontaneous
  Country: US (occurrence: US)
  Receive Date: 20190116
  Receipt Date: 20190116
  Transmission Date: 20190417
  Serious: No
  Sender: FDA-Public Use
  Company Number: US-BAUSCH-BL-2019-000306

PATIENT
  Sex: Male

DRUGS (1)
  1. RELISTOR [Suspect]
     Active Substance: METHYLNALTREXONE BROMIDE
     Indication: BOWEL MOVEMENT IRREGULARITY
     Route: 058

REACTIONS (4)
  - Diarrhoea [Recovering/Resolving]
  - Pulmonary pain [Recovering/Resolving]
  - Abdominal pain upper [Recovering/Resolving]
  - Drug withdrawal syndrome [Recovering/Resolving]
